FAERS Safety Report 14885688 (Version 2)
Quarter: 2018Q3

REPORT INFORMATION
  Report Type: Spontaneous
  Country: US (occurrence: US)
  Receive Date: 20180511
  Receipt Date: 20180831
  Transmission Date: 20181010
  Serious: Yes (Hospitalization)
  Sender: FDA-Public Use
  Company Number: US-VIFOR (INTERNATIONAL) INC.-VIT-2018-04312

PATIENT
  Age: 80 Year
  Sex: Female
  Weight: 95.34 kg

DRUGS (17)
  1. COLCHICINE. [Concomitant]
     Active Substance: COLCHICINE
  2. NEURONTIN [Concomitant]
     Active Substance: GABAPENTIN
  3. VALSARTAN. [Concomitant]
     Active Substance: VALSARTAN
  4. ALLOPURINOL. [Concomitant]
     Active Substance: ALLOPURINOL
  5. AMLODIPINE BESYLATE. [Concomitant]
     Active Substance: AMLODIPINE BESYLATE
  6. CALCITRIOL. [Concomitant]
     Active Substance: CALCITRIOL
  7. OSCAL 500/200 D?3 [Concomitant]
  8. NIFEDIPINE. [Concomitant]
     Active Substance: NIFEDIPINE
  9. CENTRUM SILVER [Concomitant]
     Active Substance: MINERALS\VITAMINS
  10. LEVOTHYROXINE SODIUM. [Concomitant]
     Active Substance: LEVOTHYROXINE SODIUM
  11. ASPIRINE 81 [Concomitant]
  12. FUROSEMIDE. [Concomitant]
     Active Substance: FUROSEMIDE
  13. TRAMADOL HCL [Concomitant]
     Active Substance: TRAMADOL HYDROCHLORIDE
  14. VELTASSA [Suspect]
     Active Substance: PATIROMER
     Indication: HYPERKALAEMIA
     Route: 048
     Dates: start: 201804, end: 2018
  15. BYSTOLIC [Concomitant]
     Active Substance: NEBIVOLOL HYDROCHLORIDE
  16. CARDURA [Concomitant]
     Active Substance: DOXAZOSIN MESYLATE
  17. FERROUS SULFATE. [Concomitant]
     Active Substance: FERROUS SULFATE

REACTIONS (6)
  - Tendon discomfort [Not Recovered/Not Resolved]
  - Gait inability [Not Recovered/Not Resolved]
  - Dry skin [Not Recovered/Not Resolved]
  - Tendon injury [Not Recovered/Not Resolved]
  - Abdominal discomfort [Unknown]
  - Pain in extremity [Not Recovered/Not Resolved]

NARRATIVE: CASE EVENT DATE: 2018
